FAERS Safety Report 7313203-3 (Version None)
Quarter: 2011Q1

REPORT INFORMATION
  Report Type: 
  Country: None (occurrence: None)
  Receive Date: 20110225
  Receipt Date: 20110215
  Transmission Date: 20110831
  Serious: Yes (Hospitalization)
  Sender: FDA-Public Use
  Company Number: US-ELI_LILLY_AND_COMPANY-US201012002281

PATIENT
  Sex: Female
  Weight: 83.9 kg

DRUGS (20)
  1. CALCIUM PLUS D3 [Concomitant]
     Dosage: 500 MG, 2/D
  2. TOPAMAX [Concomitant]
     Dosage: 100 MG, 2/D
  3. LORAZEPAM [Concomitant]
     Dosage: 1 MG, UNK
  4. FIORICET [Concomitant]
  5. MEDROL [Concomitant]
  6. FENTANYL [Concomitant]
     Dosage: 50 UG, Q 72H
  7. AUGMENTIN '125' [Concomitant]
  8. FORTEO [Suspect]
     Indication: OSTEOPOROSIS
     Dosage: 20 UG, DAILY (1/D)
     Route: 058
     Dates: start: 20100827, end: 20101005
  9. PERCOCET [Concomitant]
  10. CELEXA [Concomitant]
  11. ZANTAC [Concomitant]
  12. BENZONATATE [Concomitant]
  13. REQUIP [Concomitant]
     Dosage: 3 MG, BEDTIME
  14. VITAMIN D [Concomitant]
     Dosage: UNK, 2/D
  15. POLYGAM S/D [Concomitant]
  16. ADVAIR DISKUS 100/50 [Concomitant]
     Dosage: 1 D/F(500/50), 2/D
  17. PREDNISONE [Concomitant]
  18. XOPENEX [Concomitant]
  19. FOSAMAX [Concomitant]
  20. SIMVASTATIN [Concomitant]
     Dosage: 40 MG, DAILY (1/D)

REACTIONS (6)
  - BRONCHITIS [None]
  - HEADACHE [None]
  - ASTHMA [None]
  - CHRONIC OBSTRUCTIVE PULMONARY DISEASE [None]
  - MALAISE [None]
  - SINUSITIS [None]
